FAERS Safety Report 7538167-9 (Version None)
Quarter: 2011Q2

REPORT INFORMATION
  Report Type: 
  Country: None (occurrence: None)
  Receive Date: 20110609
  Receipt Date: 20020301
  Transmission Date: 20111010
  Serious: Yes (Other)
  Sender: FDA-Public Use
  Company Number: PHBS2002VE16289

PATIENT
  Age: 75 Year
  Sex: Male

DRUGS (1)
  1. STARLIX [Suspect]
     Dosage: 120 MG, UNK

REACTIONS (1)
  - SINUSITIS [None]
